FAERS Safety Report 19012545 (Version 2)
Quarter: 2021Q1

REPORT INFORMATION
  Report Type: Spontaneous
  Country: FR (occurrence: FR)
  Receive Date: 20210315
  Receipt Date: 20210324
  Transmission Date: 20210420
  Serious: Yes (Hospitalization)
  Sender: FDA-Public Use
  Company Number: FR-ROCHE-2789478

PATIENT
  Age: 36 Year
  Sex: Male

DRUGS (5)
  1. ALPRAZOLAM. [Suspect]
     Active Substance: ALPRAZOLAM
     Indication: SUICIDE ATTEMPT
     Dosage: 0.25MG X 2
     Route: 065
     Dates: start: 20210116, end: 20210116
  2. VALIUM [Suspect]
     Active Substance: DIAZEPAM
     Indication: SUICIDE ATTEMPT
     Dosage: 10 MG X2
     Route: 065
     Dates: start: 20210116, end: 20210116
  3. BROMAZEPAM [Suspect]
     Active Substance: BROMAZEPAM
     Indication: SUICIDE ATTEMPT
     Dosage: 6MG X16
     Route: 065
     Dates: start: 20210116, end: 20210116
  4. SERESTA [Suspect]
     Active Substance: OXAZEPAM
     Indication: SUICIDE ATTEMPT
     Dosage: 50MG X8
     Route: 065
     Dates: start: 20210116, end: 20210116
  5. ANEXATE [Suspect]
     Active Substance: FLUMAZENIL
     Indication: PRODUCT USED FOR UNKNOWN INDICATION
     Route: 065
     Dates: start: 20210116

REACTIONS (4)
  - Syncope [Unknown]
  - Somnolence [Recovered/Resolved]
  - Malaise [Unknown]
  - Agitation [Unknown]

NARRATIVE: CASE EVENT DATE: 20210116
